FAERS Safety Report 4289192-5 (Version None)
Quarter: 2004Q1

REPORT INFORMATION
  Report Type: 
  Country: None (occurrence: None)
  Receive Date: 20040115
  Receipt Date: 20030904
  Transmission Date: 20041129
  Serious: Yes (Other)
  Sender: FDA-Public Use
  Company Number: 202338

PATIENT

DRUGS (1)
  1. ACTIVASE [Suspect]

REACTIONS (1)
  - DRUG INEFFECTIVE [None]
